FAERS Safety Report 5819092-8 (Version None)
Quarter: 2008Q3

REPORT INFORMATION
  Report Type: 
  Country: None (occurrence: None)
  Receive Date: 20080721
  Receipt Date: 20080721
  Transmission Date: 20090109
  Serious: Yes (Hospitalization)
  Sender: FDA-Public Use
  Company Number: None

PATIENT
  Sex: Male
  Weight: 66 kg

DRUGS (13)
  1. RAPTIVA [Suspect]
     Indication: RENAL TRANSPLANT
     Dosage: 66 MG Q WEEK SUBQ
     Route: 058
     Dates: start: 20080311, end: 20080624
  2. CELLCEPT [Concomitant]
  3. PREDNISONE [Concomitant]
  4. PRAVASTATIN [Concomitant]
  5. NPH ILETIN II [Concomitant]
  6. GLYBURIDE [Concomitant]
  7. LOPRESSOR [Concomitant]
  8. PEPCID [Concomitant]
  9. VALTREX [Concomitant]
  10. GABAPENTIN [Concomitant]
  11. ULTRAM [Concomitant]
  12. MAG OX [Concomitant]
  13. KPHOS NEUTRAL [Concomitant]

REACTIONS (10)
  - CEREBRAL INFARCTION [None]
  - ELECTROMYOGRAM ABNORMAL [None]
  - ENCEPHALITIS VIRAL [None]
  - INFECTION [None]
  - MENINGITIS VIRAL [None]
  - MUSCULAR WEAKNESS [None]
  - ORAL CANDIDIASIS [None]
  - RADICULOPATHY [None]
  - RENAL FAILURE [None]
  - URINARY TRACT INFECTION [None]
